FAERS Safety Report 13954917 (Version 1)
Quarter: 2017Q3

REPORT INFORMATION
  Report Type: Spontaneous
  Country: CA (occurrence: CA)
  Receive Date: 20170911
  Receipt Date: 20170911
  Transmission Date: 20171128
  Serious: Yes (Hospitalization, Disabling)
  Sender: FDA-Public Use
  Company Number: None

PATIENT
  Age: 23 Year
  Sex: Female
  Weight: 55 kg

DRUGS (3)
  1. YASMIN BIRTH CONTROL PILLS [Concomitant]
  2. ASPIRIN. [Concomitant]
     Active Substance: ASPIRIN
  3. CIPRODEX [Suspect]
     Active Substance: CIPROFLOXACIN HYDROCHLORIDE\DEXAMETHASONE
     Indication: OTITIS EXTERNA
     Dosage: ?          QUANTITY:4 DROP(S);?
     Route: 001
     Dates: start: 20170901, end: 20170906

REACTIONS (13)
  - Pain in extremity [None]
  - Tremor [None]
  - Vision blurred [None]
  - Ear disorder [None]
  - Myalgia [None]
  - Tendon pain [None]
  - Ear discomfort [None]
  - Muscular weakness [None]
  - Feeling abnormal [None]
  - Arthralgia [None]
  - Gait disturbance [None]
  - Osteogenesis imperfecta [None]
  - Insomnia [None]

NARRATIVE: CASE EVENT DATE: 20170901
